FAERS Safety Report 24305601 (Version 3)
Quarter: 2025Q2

REPORT INFORMATION
  Report Type: Spontaneous
  Country: JP (occurrence: JP)
  Receive Date: 20240911
  Receipt Date: 20250630
  Transmission Date: 20250717
  Serious: Yes (Life-Threatening, Hospitalization, Other)
  Sender: AMGEN
  Company Number: JP-AMGEN-JPNSP2024176150

PATIENT
  Sex: Female

DRUGS (1)
  1. BLINCYTO [Suspect]
     Active Substance: BLINATUMOMAB
     Indication: Acute lymphocytic leukaemia
     Route: 042
     Dates: end: 202408

REACTIONS (2)
  - Venoocclusive liver disease [Not Recovered/Not Resolved]
  - Mediastinum neoplasm [Recovering/Resolving]

NARRATIVE: CASE EVENT DATE: 20240801
